FAERS Safety Report 5657503-1 (Version None)
Quarter: 2008Q1

REPORT INFORMATION
  Report Type: 
  Country: None (occurrence: None)
  Receive Date: 20080310
  Receipt Date: 20080227
  Transmission Date: 20080703
  Serious: Yes (Other)
  Sender: FDA-Public Use
  Company Number: US-ELI_LILLY_AND_COMPANY-US_0503114738

PATIENT
  Sex: Male

DRUGS (1)
  1. ZYPREXA [Suspect]
     Indication: ANXIETY
     Dosage: UNK, UNKNOWN
     Dates: start: 19970107

REACTIONS (7)
  - CARDIAC FAILURE CONGESTIVE [None]
  - CELLULITIS [None]
  - DIABETES MELLITUS [None]
  - HYPERTENSION [None]
  - PANCREATIC DISORDER [None]
  - TERMINAL STATE [None]
  - WEIGHT INCREASED [None]
